FAERS Safety Report 5307479-1 (Version None)
Quarter: 2007Q1

REPORT INFORMATION
  Report Type: 
  Country: None (occurrence: None)
  Receive Date: 20070201
  Receipt Date: 20061208
  Transmission Date: 20070707
  Serious: No
  Sender: FDA-Public Use
  Company Number: 2006PV026631

PATIENT
  Age: 78 Year
  Sex: Female
  Weight: 64.4108 kg

DRUGS (8)
  1. BYETTA [Suspect]
     Indication: DIABETES MELLITUS NON-INSULIN-DEPENDENT
     Dosage: SEE IMAGE
     Route: 058
     Dates: start: 20060501, end: 20060609
  2. BYETTA [Suspect]
     Indication: DIABETES MELLITUS NON-INSULIN-DEPENDENT
     Dosage: SEE IMAGE
     Route: 058
     Dates: start: 20060610
  3. PREDNISONE TAB [Suspect]
     Indication: POLYMYALGIA RHEUMATICA
     Dosage: SEE IMAGE
     Route: 048
     Dates: start: 20051101, end: 20060101
  4. PREDNISONE TAB [Suspect]
     Indication: POLYMYALGIA RHEUMATICA
     Dosage: SEE IMAGE
     Route: 048
     Dates: start: 20060101, end: 20060101
  5. PREDNISONE TAB [Suspect]
     Indication: POLYMYALGIA RHEUMATICA
     Dosage: SEE IMAGE
     Route: 048
     Dates: start: 20060101
  6. HUMULIN N [Concomitant]
  7. GLIPIZIDE [Concomitant]
  8. AVANDAMET [Concomitant]

REACTIONS (4)
  - BLOOD GLUCOSE INCREASED [None]
  - DRUG EFFECT DECREASED [None]
  - FEELING ABNORMAL [None]
  - POLYMYALGIA RHEUMATICA [None]
